FAERS Safety Report 23259843 (Version 1)
Quarter: 2023Q4

REPORT INFORMATION
  Report Type: Spontaneous
  Country: US (occurrence: None)
  Receive Date: 20231204
  Receipt Date: 20231204
  Transmission Date: 20240109
  Serious: No
  Sender: FDA-Public Use
  Company Number: None

PATIENT
  Age: 9 Year
  Sex: Male
  Weight: 32.66 kg

DRUGS (1)
  1. TALTZ [Suspect]
     Active Substance: IXEKIZUMAB
     Indication: Psoriasis
     Dosage: INJECTE 80MG (1 SYRINGE) SUBCUTANEOUSLY  AT WEEK 0, THEN 40MG (0.5ML) EVERY 4 WEEKS THERAF
     Route: 058
     Dates: start: 202309

REACTIONS (2)
  - Nasopharyngitis [None]
  - Therapy interrupted [None]
